FAERS Safety Report 24227967 (Version 1)
Quarter: 2024Q3

REPORT INFORMATION
  Report Type: Report from Study
  Country: BR (occurrence: BR)
  Receive Date: 20240820
  Receipt Date: 20240820
  Transmission Date: 20241016
  Serious: Yes (Life-Threatening, Hospitalization)
  Sender: SERVIER
  Company Number: BR-SERVIER DO BRASIL-S24010433

PATIENT

DRUGS (1)
  1. PEGASPARGASE [Suspect]
     Active Substance: PEGASPARGASE
     Indication: T-cell type acute leukaemia
     Dosage: 1875 U
     Route: 065
     Dates: start: 20240217

REACTIONS (1)
  - Superior sagittal sinus thrombosis [Recovered/Resolved]

NARRATIVE: CASE EVENT DATE: 20240309
